FAERS Safety Report 22619576 (Version 18)
Quarter: 2024Q1

REPORT INFORMATION
  Report Type: Spontaneous
  Country: US (occurrence: US)
  Receive Date: 20230620
  Receipt Date: 20240206
  Transmission Date: 20240410
  Serious: Yes (Hospitalization, Other)
  Sender: FDA-Public Use
  Company Number: US-GLAXOSMITHKLINE-US2023AMR084120

PATIENT
  Age: 69 Year
  Sex: Female

DRUGS (5)
  1. ZEJULA [Suspect]
     Active Substance: NIRAPARIB
     Indication: Malignant peritoneal neoplasm
     Dosage: 200 MG, QD
     Dates: start: 20230612, end: 20230630
  2. ZEJULA [Suspect]
     Active Substance: NIRAPARIB
     Dosage: 100 MG, QD
     Dates: start: 20230726
  3. ZEJULA [Suspect]
     Active Substance: NIRAPARIB
     Indication: Malignant peritoneal neoplasm
     Dosage: 200 MG, QD
  4. ZEJULA [Suspect]
     Active Substance: NIRAPARIB
     Dosage: 100 MG, QD
  5. ELIQUIS [Concomitant]
     Active Substance: APIXABAN
     Indication: Product used for unknown indication
     Dosage: UNK

REACTIONS (36)
  - Thrombocytopenia [Unknown]
  - Platelet count decreased [Not Recovered/Not Resolved]
  - Insomnia [Recovered/Resolved]
  - Pollakiuria [Unknown]
  - Dyspepsia [Recovered/Resolved]
  - Back pain [Not Recovered/Not Resolved]
  - Gastrooesophageal reflux disease [Recovered/Resolved]
  - Nausea [Unknown]
  - Contusion [Not Recovered/Not Resolved]
  - Pigmentation disorder [Not Recovered/Not Resolved]
  - Rash pruritic [Not Recovered/Not Resolved]
  - Rash papular [Not Recovered/Not Resolved]
  - Rash [Not Recovered/Not Resolved]
  - Wound [Unknown]
  - Full blood count decreased [Unknown]
  - Petechiae [Recovering/Resolving]
  - Exfoliative rash [Unknown]
  - Blood glucose increased [Unknown]
  - Malaise [Unknown]
  - Photosensitivity reaction [Unknown]
  - Asthenia [Unknown]
  - Foot deformity [Unknown]
  - Purpura [Unknown]
  - Pain in extremity [Not Recovered/Not Resolved]
  - Platelet disorder [Unknown]
  - Neck pain [Unknown]
  - Arthralgia [Not Recovered/Not Resolved]
  - Osteoarthritis [Not Recovered/Not Resolved]
  - Bone pain [Unknown]
  - Fatigue [Unknown]
  - Somnolence [Unknown]
  - Paraesthesia [Unknown]
  - Hair colour changes [Unknown]
  - Drug hypersensitivity [Unknown]
  - Incorrect dose administered [Unknown]
  - Product dose omission issue [Unknown]

NARRATIVE: CASE EVENT DATE: 20230601
